FAERS Safety Report 18106190 (Version 2)
Quarter: 2020Q3

REPORT INFORMATION
  Report Type: Spontaneous
  Country: US (occurrence: US)
  Receive Date: 20200803
  Receipt Date: 20200827
  Transmission Date: 20201103
  Serious: Yes (Hospitalization, Other)
  Sender: FDA-Public Use
  Company Number: US-GILEAD-2020-0486993

PATIENT
  Age: 50 Year
  Sex: Male
  Weight: 131.11 kg

DRUGS (23)
  1. ASPIRIN [ACETYLSALICYLIC ACID] [Concomitant]
     Active Substance: ASPIRIN
     Indication: ANTIPLATELET THERAPY
     Dosage: 81 MG
     Route: 048
     Dates: start: 20200720, end: 20200728
  2. IVERMECTIN. [Concomitant]
     Active Substance: IVERMECTIN
     Indication: COVID-19
     Dosage: 25500 MCG
     Route: 048
     Dates: start: 20200720, end: 20200720
  3. ATORVASTATIN [Concomitant]
     Active Substance: ATORVASTATIN
     Indication: BLOOD CHOLESTEROL
     Dosage: 80 MG
     Route: 048
     Dates: start: 20200720, end: 20200728
  4. FLUTICASONE. [Concomitant]
     Active Substance: FLUTICASONE
     Indication: NASAL CONGESTION
     Dosage: 2 SPRAY
     Route: 045
     Dates: start: 20200719, end: 20200728
  5. BUDESONIDE. [Concomitant]
     Active Substance: BUDESONIDE
     Dosage: 0.5 MG
     Route: 055
     Dates: start: 20200721, end: 20200728
  6. HYDRALAZINE [Concomitant]
     Active Substance: HYDRALAZINE HYDROCHLORIDE
     Dosage: 5 MG
     Dates: start: 20200720, end: 20200720
  7. THIAMINE. [Concomitant]
     Active Substance: THIAMINE
     Indication: NUTRITIONAL SUPPLEMENTATION
     Dosage: 200 MG
     Route: 042
     Dates: start: 20200720, end: 20200727
  8. ALBUTEROL [SALBUTAMOL SULFATE] [Concomitant]
     Active Substance: ALBUTEROL SULFATE
     Dosage: 2 PUFF
     Route: 055
     Dates: start: 20200719, end: 20200728
  9. FUROSEMIDE. [Concomitant]
     Active Substance: FUROSEMIDE
     Indication: POLYURIA
     Dosage: 40 MG
     Route: 048
     Dates: start: 20200719, end: 20200728
  10. ASCORBIC ACID. [Concomitant]
     Active Substance: ASCORBIC ACID
     Indication: COVID-19
     Dosage: 3000 MG
     Route: 042
     Dates: start: 20200720, end: 20200727
  11. ZINC SULFATE. [Concomitant]
     Active Substance: ZINC SULFATE
     Indication: NUTRITIONAL SUPPLEMENTATION
     Dosage: 220 MG
     Route: 048
     Dates: start: 20200720, end: 20200728
  12. REMDESIVIR. [Suspect]
     Active Substance: REMDESIVIR
     Dosage: 100 MG, QD
     Route: 042
     Dates: start: 20200721, end: 20200723
  13. LORAZEPAM. [Concomitant]
     Active Substance: LORAZEPAM
     Indication: ANXIETY
     Dosage: 1 MG
     Route: 042
     Dates: start: 20200719, end: 20200728
  14. LOSARTAN. [Concomitant]
     Active Substance: LOSARTAN
     Indication: HYPERTENSION
     Dosage: 100 MG
     Route: 048
     Dates: start: 20200719, end: 20200728
  15. MELATONIN [Concomitant]
     Active Substance: MELATONIN
     Dosage: 6 MG
     Route: 048
     Dates: start: 20200720, end: 20200728
  16. FAMOTIDINE. [Concomitant]
     Active Substance: FAMOTIDINE
     Dosage: 20 MG
     Route: 042
     Dates: start: 20200720, end: 20200727
  17. HEPARIN [Concomitant]
     Active Substance: HEPARIN SODIUM
     Indication: THROMBOSIS PROPHYLAXIS
     Dosage: 7500 UNITS
     Route: 058
     Dates: start: 20200720, end: 20200727
  18. REMDESIVIR. [Suspect]
     Active Substance: REMDESIVIR
     Indication: COVID-19
     Dosage: 200 MG, ONCE
     Route: 042
     Dates: start: 20200720, end: 20200720
  19. AZITHROMYCIN ANHYDROUS. [Concomitant]
     Active Substance: AZITHROMYCIN ANHYDROUS
     Indication: PNEUMONIA
     Dosage: 500 MG
     Route: 042
     Dates: start: 20200720, end: 20200721
  20. CEFEPIME [Concomitant]
     Active Substance: CEFEPIME HYDROCHLORIDE
     Indication: PNEUMONIA
     Dosage: 2 G
     Route: 042
     Dates: start: 20200719, end: 20200727
  21. GUAIFENESIN. [Concomitant]
     Active Substance: GUAIFENESIN
     Indication: COUGH
     Dosage: 600 MG
     Route: 048
     Dates: start: 20200720, end: 20200728
  22. VANCOMYCIN [Concomitant]
     Active Substance: VANCOMYCIN
     Indication: PNEUMONIA
     Dosage: 1250 MG
     Route: 042
     Dates: start: 20200719, end: 20200721
  23. AMLODIPINE [Concomitant]
     Active Substance: AMLODIPINE BESYLATE
     Indication: HYPERTENSION
     Dosage: 5 MG
     Route: 048
     Dates: start: 20200720, end: 20200723

REACTIONS (1)
  - Liver function test increased [Recovered/Resolved]

NARRATIVE: CASE EVENT DATE: 20200723
